FAERS Safety Report 6305209-8 (Version None)
Quarter: 2009Q3

REPORT INFORMATION
  Report Type: 
  Country: None (occurrence: None)
  Receive Date: 20090810
  Receipt Date: 20090810
  Transmission Date: 20100115
  Serious: No
  Sender: FDA-Public Use
  Company Number: None

PATIENT
  Sex: Female
  Weight: 116.1208 kg

DRUGS (2)
  1. DIVALPROEX SODIUM EXTENDED RELEASE [Suspect]
     Indication: AFFECTIVE DISORDER
     Dosage: 500 MG ER 1 QHS
     Dates: start: 20090723
  2. DIVALPROEX SODIUM EXTENDED RELEASE [Suspect]
     Indication: AFFECTIVE DISORDER
     Dosage: 500 MG ER 1 QHS
     Dates: start: 20090724

REACTIONS (3)
  - ABDOMINAL PAIN UPPER [None]
  - BOWEL MOVEMENT IRREGULARITY [None]
  - NAUSEA [None]
